FAERS Safety Report 4466902-5 (Version None)
Quarter: 2004Q3

REPORT INFORMATION
  Report Type: 
  Country: None (occurrence: None)
  Receive Date: 20040930
  Receipt Date: 20040915
  Transmission Date: 20050211
  Serious: Yes (Hospitalization)
  Sender: FDA-Public Use
  Company Number: 164569

PATIENT
  Age: 40 Year
  Sex: Female
  Weight: 63.5036 kg

DRUGS (4)
  1. AVONEX [Suspect]
     Indication: MULTIPLE SCLEROSIS
     Dosage: 30 MCG QW IM
     Route: 030
     Dates: start: 20020601
  2. PREVACID [Concomitant]
  3. CLARITIN [Concomitant]
  4. METHADONE HCL [Concomitant]

REACTIONS (3)
  - ENDOMETRIOSIS [None]
  - POSTOPERATIVE FEVER [None]
  - UTERINE LEIOMYOMA [None]
